FAERS Safety Report 9855830 (Version 1)
Quarter: 2014Q1

REPORT INFORMATION
  Report Type: Report from Study
  Country: AU (occurrence: AU)
  Receive Date: 20140130
  Receipt Date: 20140130
  Transmission Date: 20141002
  Serious: Yes (Other)
  Sender: FDA-Public Use
  Company Number: AU-TEVA-459735ISR

PATIENT
  Age: 51 Year
  Sex: Female

DRUGS (6)
  1. COPAXONE [Suspect]
     Indication: MULTIPLE SCLEROSIS
     Route: 058
     Dates: start: 20110628
  2. EPIPEN [Concomitant]
  3. TEGRETOL [Concomitant]
  4. VITAMIN D [Concomitant]
  5. IRON [Concomitant]
  6. CALCIUM [Concomitant]

REACTIONS (1)
  - Sarcoidosis [Not Recovered/Not Resolved]
